FAERS Safety Report 8078522-4 (Version None)
Quarter: 2012Q1

REPORT INFORMATION
  Report Type: 
  Country: None (occurrence: None)
  Receive Date: 20120124
  Receipt Date: 20120119
  Transmission Date: 20120608
  Serious: Yes (Death, Hospitalization, Other)
  Sender: FDA-Public Use
  Company Number: 2008-178179-NL

PATIENT
  Age: 29 Year
  Sex: Female
  Weight: 106.1417 kg

DRUGS (1)
  1. NUVARING [Suspect]
     Indication: CONTRACEPTION
     Dosage: 1 DF, VAG
     Route: 067
     Dates: start: 20060628, end: 20060901

REACTIONS (22)
  - EPILEPSY [None]
  - GRAND MAL CONVULSION [None]
  - ANKLE FRACTURE [None]
  - ACUTE MYOCARDIAL INFARCTION [None]
  - ANXIETY [None]
  - INTERNATIONAL NORMALISED RATIO DECREASED [None]
  - UNRESPONSIVE TO STIMULI [None]
  - FIBULA FRACTURE [None]
  - CYANOSIS [None]
  - RESPIRATORY DISTRESS [None]
  - SKELETAL INJURY [None]
  - SYNCOPE [None]
  - ATRIAL FIBRILLATION [None]
  - MUSCLE SPASMS [None]
  - CARDIO-RESPIRATORY ARREST [None]
  - OBESITY [None]
  - THROMBOTIC STROKE [None]
  - ROAD TRAFFIC ACCIDENT [None]
  - TRANSVERSE SINUS THROMBOSIS [None]
  - ANTIPHOSPHOLIPID SYNDROME [None]
  - LIGAMENT SPRAIN [None]
  - PULMONARY EMBOLISM [None]
